FAERS Safety Report 8141691-1 (Version None)
Quarter: 2012Q1

REPORT INFORMATION
  Report Type: 
  Country: None (occurrence: None)
  Receive Date: 20120216
  Receipt Date: 20120214
  Transmission Date: 20120608
  Serious: Yes (Other)
  Sender: FDA-Public Use
  Company Number: US-TEVA-322474USA

PATIENT
  Sex: Male

DRUGS (1)
  1. NALTREXONE HYDROCHLORIDE [Suspect]
     Route: 048

REACTIONS (4)
  - PHARYNGEAL OEDEMA [None]
  - URTICARIA [None]
  - SWOLLEN TONGUE [None]
  - HEART RATE INCREASED [None]
